FAERS Safety Report 14930469 (Version 4)
Quarter: 2018Q2

REPORT INFORMATION
  Report Type: Spontaneous
  Country: DE (occurrence: DE)
  Receive Date: 20180523
  Receipt Date: 20180618
  Transmission Date: 20180711
  Serious: Yes (Other)
  Sender: FDA-Public Use
  Company Number: PHHY2018DE004190

PATIENT
  Sex: Male

DRUGS (5)
  1. SANDIMMUN OPTORAL [Suspect]
     Active Substance: CYCLOSPORINE
     Dosage: CURRENT DOSE: 85MG ? 0 ? 75MG
     Route: 065
     Dates: end: 2017
  2. SANDIMMUN OPTORAL [Suspect]
     Active Substance: CYCLOSPORINE
     Indication: RENAL TRANSPLANT
     Dosage: 125 UNK, BID (INITIAL DOSE:125-0-125)
     Route: 065
  3. SANDIMMUN OPTORAL [Suspect]
     Active Substance: CYCLOSPORINE
     Dosage: CURRENT DOSE: 85MG ? 0 ? 75MG
     Route: 065
     Dates: end: 2017
  4. SANDIMMUN OPTORAL [Suspect]
     Active Substance: CYCLOSPORINE
     Dosage: 125 UNK, BID 125 UNK, BID (INITIAL DOSE:125-0-125)
     Route: 065
  5. CELLSEPT [Concomitant]
     Active Substance: MYCOPHENOLATE MOFETIL
     Indication: PRODUCT USED FOR UNKNOWN INDICATION
     Dosage: UNK
     Route: 065

REACTIONS (16)
  - Head discomfort [Unknown]
  - Fatigue [Unknown]
  - Hypokinesia [Unknown]
  - Loss of personal independence in daily activities [Unknown]
  - Alcohol intolerance [Unknown]
  - Memory impairment [Unknown]
  - Restlessness [Unknown]
  - Dizziness [Unknown]
  - Vertigo [Unknown]
  - Dysgeusia [Unknown]
  - Coordination abnormal [Unknown]
  - Feeling abnormal [Unknown]
  - Intraocular pressure increased [Unknown]
  - Bradyphrenia [Unknown]
  - Myocardial infarction [Unknown]
  - Ocular discomfort [Unknown]

NARRATIVE: CASE EVENT DATE: 2017
